FAERS Safety Report 6615420-4 (Version None)
Quarter: 2010Q1

REPORT INFORMATION
  Report Type: 
  Country: None (occurrence: None)
  Receive Date: 20100305
  Receipt Date: 20091118
  Transmission Date: 20100710
  Serious: No
  Sender: FDA-Public Use
  Company Number: A0817738A

PATIENT
  Age: 62 Year
  Sex: Female

DRUGS (4)
  1. ROPINIROLE [Suspect]
     Indication: PARKINSON'S DISEASE
     Dosage: .25MG THREE TIMES PER DAY
     Route: 048
     Dates: start: 20091001, end: 20091001
  2. PROTONIX [Concomitant]
  3. CARBOLEVURE [Concomitant]
  4. CLONAZEPAM [Concomitant]

REACTIONS (2)
  - ABDOMINAL PAIN UPPER [None]
  - DYSPEPSIA [None]
